FAERS Safety Report 5819277-0 (Version None)
Quarter: 2008Q3

REPORT INFORMATION
  Report Type: 
  Country: None (occurrence: None)
  Receive Date: 20080723
  Receipt Date: 20080324
  Transmission Date: 20090109
  Serious: No
  Sender: FDA-Public Use
  Company Number: US-BAYER-200810297BCC

PATIENT
  Age: 69 Year
  Sex: Female
  Weight: 84 kg

DRUGS (8)
  1. ALEVE [Suspect]
     Indication: PAIN
     Route: 048
     Dates: start: 20080107
  2. ALEVE (CAPLET) [Suspect]
     Indication: HEADACHE
     Dosage: UNIT DOSE: 220 MG
     Route: 048
     Dates: start: 20080322
  3. PREDNISONE TAB [Concomitant]
  4. TYLENOL [Concomitant]
  5. PRILOSEC [Concomitant]
  6. VITAMIN TAB [Concomitant]
  7. FISH OIL [Concomitant]
  8. CALCIUM [Concomitant]

REACTIONS (7)
  - BURNING SENSATION [None]
  - GLOSSODYNIA [None]
  - LACRIMATION INCREASED [None]
  - OESOPHAGEAL PAIN [None]
  - ORAL DISCOMFORT [None]
  - RHINORRHOEA [None]
  - THROAT IRRITATION [None]
